FAERS Safety Report 5211813-0 (Version None)
Quarter: 2007Q1

REPORT INFORMATION
  Report Type: 
  Country: None (occurrence: None)
  Receive Date: 20070118
  Receipt Date: 20070110
  Transmission Date: 20070707
  Serious: Yes (Hospitalization)
  Sender: FDA-Public Use
  Company Number: GB-ROCHE-478478

PATIENT
  Age: 34 Year
  Sex: Female

DRUGS (4)
  1. GRANISETRON  HCL [Suspect]
     Indication: DRUG USE FOR UNKNOWN INDICATION
     Route: 065
  2. AUGMENTIN '125' [Suspect]
     Indication: PROPHYLAXIS
     Route: 042
  3. DICLOFENAC SODIUM [Suspect]
     Indication: ANALGESIC THERAPY
     Route: 065
  4. ENOXAPARIN SODIUM [Suspect]
     Indication: THROMBOSIS PROPHYLAXIS
     Route: 065

REACTIONS (8)
  - ACUTE GENERALISED EXANTHEMATOUS PUSTULOSIS [None]
  - ERYTHEMA [None]
  - MALAISE [None]
  - PYREXIA [None]
  - RASH [None]
  - SKIN EXFOLIATION [None]
  - SKIN OEDEMA [None]
  - TACHYCARDIA [None]
